FAERS Safety Report 4411951-6 (Version None)
Quarter: 2004Q3

REPORT INFORMATION
  Report Type: 
  Country: None (occurrence: None)
  Receive Date: 20040727
  Receipt Date: 20040714
  Transmission Date: 20050211
  Serious: Yes (Life-Threatening)
  Sender: FDA-Public Use
  Company Number: 04H-167-0267239-00

PATIENT
  Age: 19 Year
  Sex: Male
  Weight: 75 kg

DRUGS (5)
  1. QUELICIN INJECTION (SUCCINYLCHOLINE CHLORIDE INJECTION) (SUCCINYLCHOLI [Suspect]
     Indication: ANAESTHESIA
     Dosage: 50 MG, NOT REPORTED,
  2. DIZAEPAM [Concomitant]
  3. THIOPENTAL SODIUM [Concomitant]
  4. ATROPINE [Concomitant]
  5. OXYGEN [Concomitant]

REACTIONS (2)
  - ANAPHYLACTIC REACTION [None]
  - TYPE I HYPERSENSITIVITY [None]
